FAERS Safety Report 20405111 (Version 1)
Quarter: 2022Q1

REPORT INFORMATION
  Report Type: Spontaneous
  Country: US (occurrence: None)
  Receive Date: 20220130
  Receipt Date: 20220130
  Transmission Date: 20220424
  Serious: Yes (Hospitalization, Disabling)
  Sender: FDA-Public Use
  Company Number: None

PATIENT
  Age: 61 Year
  Sex: Male

DRUGS (4)
  1. COSENTYX [Suspect]
     Active Substance: SECUKINUMAB
     Dates: start: 20200127, end: 20220122
  2. CARVEDILOL [Concomitant]
     Active Substance: CARVEDILOL
  3. aspirin [Concomitant]
  4. TRAMADOL [Concomitant]
     Active Substance: TRAMADOL

REACTIONS (1)
  - Cellulitis [None]

NARRATIVE: CASE EVENT DATE: 20220115
